FAERS Safety Report 7367926-0 (Version None)
Quarter: 2011Q1

REPORT INFORMATION
  Report Type: 
  Country: None (occurrence: None)
  Receive Date: 20110322
  Receipt Date: 20110321
  Transmission Date: 20110831
  Serious: Yes (Other)
  Sender: FDA-Public Use
  Company Number: CHPA2011NZ04243

PATIENT
  Age: 55 Year
  Sex: Female

DRUGS (2)
  1. NICOTINE [Suspect]
     Indication: SMOKING CESSATION THERAPY
     Dosage: 2 MG, 8-12 PIECES DAILY FOR 6-7 YEARS
     Route: 002
  2. THYROXINE [Concomitant]
     Indication: THYROID DISORDER
     Dosage: UNK, UNK
     Route: 065

REACTIONS (5)
  - VISUAL IMPAIRMENT [None]
  - ABNORMAL DREAMS [None]
  - SLEEP DISORDER [None]
  - INTENTIONAL DRUG MISUSE [None]
  - HALLUCINATION [None]
